FAERS Safety Report 6309666-2 (Version None)
Quarter: 2009Q3

REPORT INFORMATION
  Report Type: 
  Country: None (occurrence: None)
  Receive Date: 20090814
  Receipt Date: 20090812
  Transmission Date: 20100115
  Serious: No
  Sender: FDA-Public Use
  Company Number: US-B.I. PHARMACEUTICALS,INC./RIDGEFIELD-2009-BP-09495BP

PATIENT

DRUGS (1)
  1. MOBIC [Suspect]

REACTIONS (1)
  - DRUG INTOLERANCE [None]
